FAERS Safety Report 13203892 (Version 3)
Quarter: 2017Q2

REPORT INFORMATION
  Report Type: Report from Study
  Country: US (occurrence: US)
  Receive Date: 20170209
  Receipt Date: 20170412
  Transmission Date: 20170830
  Serious: Yes (Other)
  Sender: FDA-Public Use
  Company Number: US-BRISTOL-MYERS SQUIBB COMPANY-BMS-2017-007111

PATIENT
  Age: 40 Year
  Sex: Female
  Weight: 64.85 kg

DRUGS (4)
  1. PREDNISONE. [Suspect]
     Active Substance: PREDNISONE
     Indication: RENAL TRANSPLANT
     Dosage: 10 MG, QD
     Route: 048
  2. PRENATAL VITAMINS                  /02014401/ [Suspect]
     Active Substance: VITAMINS
     Indication: NUTRITIONAL SUPPLEMENTATION
     Dosage: UNK, QD
     Route: 048
  3. AZATHIOPRINE. [Suspect]
     Active Substance: AZATHIOPRINE
     Indication: RENAL TRANSPLANT
     Dosage: 50 MG, BID
     Route: 048
     Dates: start: 20160302
  4. BELATACEPT [Suspect]
     Active Substance: BELATACEPT
     Indication: RENAL TRANSPLANT
     Dosage: 250 MG, QMO
     Route: 042

REACTIONS (4)
  - Product use issue [Unknown]
  - Maternal exposure during pregnancy [Recovered/Resolved]
  - Live birth [Unknown]
  - Vascular insufficiency [Unknown]

NARRATIVE: CASE EVENT DATE: 20161209
